FAERS Safety Report 13449231 (Version 4)
Quarter: 2017Q3

REPORT INFORMATION
  Report Type: Spontaneous
  Country: FR (occurrence: FR)
  Receive Date: 20170417
  Receipt Date: 20170828
  Transmission Date: 20171127
  Serious: Yes (Hospitalization)
  Sender: FDA-Public Use
  Company Number: FR-PFIZER INC-2017157592

PATIENT
  Age: 83 Year
  Sex: Female

DRUGS (3)
  1. TAHOR [Concomitant]
     Active Substance: ATORVASTATIN CALCIUM
     Dosage: 20 MG, DAILY (1 DF, DAILY)
     Dates: end: 20170322
  2. CORDARONE [Suspect]
     Active Substance: AMIODARONE HYDROCHLORIDE
     Dosage: 200 MG, 2X/DAY (1 DF, 2X/DAY)
     Route: 048
     Dates: start: 20170301, end: 20170322
  3. AMOXICILLINE [Suspect]
     Active Substance: AMOXICILLIN
     Indication: RHINITIS
     Dosage: 1 G, 2X/DAY (1 DF, 2X/DAY)
     Route: 048
     Dates: start: 20170319, end: 20170322

REACTIONS (2)
  - Hepatitis cholestatic [Recovering/Resolving]
  - Jaundice [Recovering/Resolving]

NARRATIVE: CASE EVENT DATE: 20170322
